FAERS Safety Report 8805767 (Version 1)
Quarter: 2012Q4

REPORT INFORMATION
  Report Type: 
  Country: US (occurrence: US)
  Receive Date: 20120924
  Receipt Date: 20120924
  Transmission Date: 20130627
  Serious: Yes (Death, Hospitalization, Other)
  Sender: FDA-Public Use
  Company Number: US-TEVA-359872USA

PATIENT
  Age: 16 Year
  Sex: Female

DRUGS (17)
  1. METHYLPREDNISOLONE [Suspect]
     Indication: NEUROPSYCHIATRIC LUPUS
     Dosage: 25mg every 8 hours
     Route: 042
  2. METHYLPREDNISOLONE [Suspect]
     Indication: NEUROPSYCHIATRIC LUPUS
     Dosage: 3-day pulse of 1000mg
     Route: 042
  3. METHYLPREDNISOLONE [Suspect]
     Indication: NEUROPSYCHIATRIC LUPUS
     Dosage: 1g
     Route: 042
  4. METHYLPREDNISOLONE [Suspect]
     Indication: NEUROPSYCHIATRIC LUPUS
     Dosage: maintenance dose of 30mg every 8 hours
     Route: 042
  5. PREDNISONE [Suspect]
     Indication: SYSTEMIC LUPUS ERYTHEMATOSUS
     Dosage: 20 mg/day
     Route: 065
  6. IMURAN [Suspect]
     Indication: SYSTEMIC LUPUS ERYTHEMATOSUS
     Dosage: 125 mg/day
     Route: 065
  7. PLAQUENIL [Suspect]
     Indication: SYSTEMIC LUPUS ERYTHEMATOSUS
     Dosage: 300 mg/day
     Route: 065
  8. CYTOXAN [Suspect]
     Indication: NEUROPSYCHIATRIC LUPUS
     Dosage: 10 mg/kg every 2 weeks; received two doses
     Route: 042
  9. DECADRON [Concomitant]
     Route: 065
  10. CEFTRIAXONE [Concomitant]
     Route: 065
  11. VANCOMYCIN [Concomitant]
     Route: 065
  12. ACICLOVIR [Concomitant]
     Route: 065
  13. GANCICLOVIR [Concomitant]
     Indication: CYTOMEGALOVIRUS INFECTION
     Route: 065
  14. VORICONAZOLE [Concomitant]
     Indication: FUNGAL INFECTION
     Route: 065
  15. MEROPENEM [Concomitant]
     Route: 065
  16. BACTRIM [Concomitant]
     Route: 065
  17. LEVOFLOXACIN [Concomitant]
     Indication: PNEUMONIA
     Route: 065

REACTIONS (2)
  - Acanthamoeba infection [Fatal]
  - Encephalitis [Fatal]
